FAERS Safety Report 9713963 (Version 1)
Quarter: 2013Q4

REPORT INFORMATION
  Report Type: Spontaneous
  Country: US (occurrence: US)
  Receive Date: 20131126
  Receipt Date: 20131126
  Transmission Date: 20140711
  Serious: No
  Sender: FDA-Public Use
  Company Number: US-GILEAD-2008-0018305

PATIENT
  Sex: Female
  Weight: 72.12 kg

DRUGS (17)
  1. LETAIRIS [Suspect]
     Indication: PULMONARY ARTERIAL HYPERTENSION
     Route: 048
     Dates: start: 20080308
  2. OXYGEN [Concomitant]
     Dosage: AS DIRECTED
     Route: 045
  3. DEMADEX [Concomitant]
     Route: 048
  4. ZOLOFT [Concomitant]
     Route: 048
  5. IPRATROPIUM BROMIDE [Concomitant]
     Dosage: AS DIRECTED
     Route: 055
  6. COUMADIN [Concomitant]
     Dosage: AS DIRECTED
     Route: 048
  7. REVATIO [Concomitant]
     Route: 048
  8. DIGOXIN [Concomitant]
     Route: 048
  9. ALBUTEROL [Concomitant]
     Dosage: AS DIRECTED
     Route: 055
  10. SYMBICORT [Concomitant]
     Dosage: AS DIRECTED
     Route: 055
  11. SPIRONOLACTONE [Concomitant]
     Route: 048
  12. CLORAZEPATE [Concomitant]
     Route: 048
  13. GLUCOSAMINE [Concomitant]
     Dosage: AS DIRECTED
     Route: 048
  14. GLIPIZIDE ER [Concomitant]
     Route: 048
  15. CALCIUM [Concomitant]
     Dosage: AS DIRECTED
     Route: 048
  16. POTASSIUM CHLORIDE [Concomitant]
     Route: 048
  17. MAG-OXIDE [Concomitant]
     Dosage: AS DIRECTED
     Route: 048

REACTIONS (1)
  - Nasal congestion [None]
